FAERS Safety Report 8286903-9 (Version None)
Quarter: 2012Q2

REPORT INFORMATION
  Report Type: 
  Country: None (occurrence: None)
  Receive Date: 20120416
  Receipt Date: 20120406
  Transmission Date: 20120825
  Serious: Yes (Life-Threatening, Hospitalization)
  Sender: FDA-Public Use
  Company Number: KR-MILLENNIUM PHARMACEUTICALS, INC.-2008-03537

PATIENT

DRUGS (5)
  1. VELCADE [Suspect]
     Indication: B-CELL LYMPHOMA
     Dosage: 1.7 MG, UNK
     Route: 042
     Dates: start: 20080725, end: 20080915
  2. CYCLOPHOSPHAMIDE [Suspect]
     Indication: B-CELL LYMPHOMA
     Dosage: 1300 MG, UNK
     Route: 042
     Dates: start: 20080627, end: 20080912
  3. DOXIL [Suspect]
     Indication: B-CELL LYMPHOMA
     Dosage: 84 MG, UNK
     Route: 042
     Dates: start: 20080627, end: 20080912
  4. VINCRISTINE [Suspect]
     Indication: B-CELL LYMPHOMA
     Dosage: 2 MG, UNK
     Route: 042
     Dates: start: 20080627, end: 20080912
  5. PREDNISONE [Suspect]
     Indication: B-CELL LYMPHOMA
     Dosage: 100 MG, UNK
     Route: 042
     Dates: start: 20080711, end: 20080916

REACTIONS (2)
  - HERPES ZOSTER [None]
  - NEUTROPENIA [None]
